FAERS Safety Report 8923585 (Version 4)
Quarter: 2013Q2

REPORT INFORMATION
  Report Type: Spontaneous
  Country: JP (occurrence: None)
  Receive Date: 20121114
  Receipt Date: 20130410
  Transmission Date: 20140414
  Serious: Yes (Life-Threatening)
  Sender: FDA-Public Use
  Company Number: AE-SPE-2012-023

PATIENT
  Age: 1 Year
  Sex: Female
  Weight: 11.5 kg

DRUGS (8)
  1. MEIACT [Suspect]
     Indication: SINUSITIS
     Route: 048
     Dates: start: 20120114, end: 20120128
  2. ORAPENEM [Suspect]
     Indication: SINUSITIS
     Route: 048
     Dates: start: 20120128, end: 20120216
  3. ANTIBIOTICS-RESISTANT LACTIC ACID BACTERIAE [Concomitant]
  4. KETOTIFEN FUMARATE [Concomitant]
  5. TIPEPIDINE HIBENZATE [Concomitant]
  6. PROCATEROL [Concomitant]
  7. TULOBUTEROL [Concomitant]
  8. ACETAMINOPHEN [Concomitant]

REACTIONS (5)
  - Carnitine deficiency [None]
  - Hypoglycaemia [None]
  - Altered state of consciousness [None]
  - Unresponsive to stimuli [None]
  - Pyrexia [None]
